FAERS Safety Report 8885982 (Version 3)
Quarter: 2013Q2

REPORT INFORMATION
  Report Type: Spontaneous
  Country: US (occurrence: US)
  Receive Date: 20121105
  Receipt Date: 20130506
  Transmission Date: 20140414
  Serious: No
  Sender: FDA-Public Use
  Company Number: US-009507513-1210USA010104

PATIENT
  Age: 55 Year
  Sex: Male

DRUGS (8)
  1. VICTRELIS [Suspect]
     Indication: CHRONIC HEPATITIS C
     Dosage: 800 MG, TID
     Route: 048
     Dates: start: 20120531, end: 2012
  2. VICTRELIS [Suspect]
     Dosage: 800 MG, QD
     Route: 048
     Dates: start: 20120622, end: 20120912
  3. PEGASYS [Suspect]
     Indication: HEPATITIS C
     Dosage: 180 MICROGRAM, QW
     Dates: start: 20120514, end: 20120912
  4. REBETOL [Suspect]
     Indication: HEPATITIS C
     Dosage: 1200 MG, QD
     Route: 048
     Dates: start: 20120514, end: 20120902
  5. NEXIUM [Concomitant]
     Dosage: 40 MG, QD
  6. PROZAC [Concomitant]
     Dosage: 40 MG, QD
     Dates: start: 201205
  7. LISINOPRIL [Concomitant]
     Dosage: 5 MG, QD
  8. METFORMIN [Concomitant]
     Dosage: 1000 MG, QD

REACTIONS (3)
  - Viral load increased [Not Recovered/Not Resolved]
  - Anaemia [Recovering/Resolving]
  - Neutropenia [Not Recovered/Not Resolved]
